FAERS Safety Report 20335709 (Version 6)
Quarter: 2022Q1

REPORT INFORMATION
  Report Type: Spontaneous
  Country: JP (occurrence: JP)
  Receive Date: 20220114
  Receipt Date: 20220328
  Transmission Date: 20220423
  Serious: Yes (Death, Life-Threatening)
  Sender: FDA-Public Use
  Company Number: JP-ABBVIE-22K-087-4234430-00

PATIENT
  Age: 71 Year
  Sex: Female
  Weight: 45 kg

DRUGS (13)
  1. HUMIRA [Suspect]
     Active Substance: ADALIMUMAB
     Indication: Uveitis
     Route: 058
     Dates: start: 20180425, end: 20180425
  2. HUMIRA [Suspect]
     Active Substance: ADALIMUMAB
     Indication: Scleritis
     Route: 058
     Dates: start: 20180509, end: 20200401
  3. PREDNISOLONE [Suspect]
     Active Substance: PREDNISOLONE
     Indication: Uveitis
     Route: 048
  4. PREDNISOLONE [Suspect]
     Active Substance: PREDNISOLONE
     Indication: Scleritis
     Dosage: 1.5 TIMES A DAY
     Route: 048
     Dates: start: 20180425, end: 20200406
  5. PREDNISOLONE [Suspect]
     Active Substance: PREDNISOLONE
     Dosage: DOSE INCREASED
     Route: 048
  6. PREDNISOLONE [Suspect]
     Active Substance: PREDNISOLONE
     Dosage: DOSE INCREASED
     Route: 048
  7. WARFARIN POTASSIUM [Concomitant]
     Active Substance: WARFARIN POTASSIUM
     Indication: Cardiac failure chronic
     Dates: start: 2016, end: 20200406
  8. WARFARIN POTASSIUM [Concomitant]
     Active Substance: WARFARIN POTASSIUM
     Indication: Mitral valve stenosis
  9. FUROSEMIDE [Concomitant]
     Active Substance: FUROSEMIDE
     Indication: Cardiac failure chronic
     Dates: start: 2016, end: 20200406
  10. FUROSEMIDE [Concomitant]
     Active Substance: FUROSEMIDE
     Indication: Mitral valve stenosis
  11. CARVEDILOL [Concomitant]
     Active Substance: CARVEDILOL
     Indication: Cardiac failure chronic
     Dates: start: 2016, end: 20200406
  12. CARVEDILOL [Concomitant]
     Active Substance: CARVEDILOL
     Indication: Mitral valve stenosis
  13. SULFASALAZINE [Concomitant]
     Active Substance: SULFASALAZINE
     Indication: Rheumatoid arthritis
     Dates: start: 2020, end: 20200406

REACTIONS (8)
  - Septic shock [Fatal]
  - Mycobacterium avium complex infection [Fatal]
  - Bronchopulmonary aspergillosis [Fatal]
  - Pneumonia bacterial [Fatal]
  - Epstein-Barr virus associated lymphoproliferative disorder [Unknown]
  - Cytomegalovirus infection [Not Recovered/Not Resolved]
  - Epstein-Barr virus infection [Unknown]
  - Hepatitis B reactivation [Unknown]

NARRATIVE: CASE EVENT DATE: 20181017
